FAERS Safety Report 7864610-1 (Version None)
Quarter: 2011Q4

REPORT INFORMATION
  Report Type: 
  Country: None (occurrence: None)
  Receive Date: 20111026
  Receipt Date: 20111013
  Transmission Date: 20120403
  Serious: Yes (Hospitalization)
  Sender: FDA-Public Use
  Company Number: 2011MA015090

PATIENT
  Age: 31 Year
  Sex: Male

DRUGS (1)
  1. IBUPROFEN [Suspect]
     Indication: MUSCULOSKELETAL PAIN
     Dosage: PO
     Route: 048
     Dates: start: 20110521

REACTIONS (3)
  - BACK PAIN [None]
  - BLOOD CREATININE INCREASED [None]
  - VOMITING [None]
